FAERS Safety Report 5185917-5 (Version None)
Quarter: 2006Q4

REPORT INFORMATION
  Report Type: 
  Country: None (occurrence: None)
  Receive Date: 20061220
  Receipt Date: 20060929
  Transmission Date: 20070319
  Serious: No
  Sender: FDA-Public Use
  Company Number: US-GLAXOSMITHKLINE-A0621887A

PATIENT
  Age: 42 Year
  Sex: Male

DRUGS (3)
  1. NICODERM CQ [Suspect]
     Route: 062
     Dates: start: 20060929
  2. NICODERM CQ [Suspect]
     Dosage: 1PAT PER DAY
     Route: 062
     Dates: start: 20060827, end: 20060928
  3. NICODERM CQ [Suspect]

REACTIONS (5)
  - FEELING ABNORMAL [None]
  - FEELING JITTERY [None]
  - HEADACHE [None]
  - MALAISE [None]
  - NERVOUSNESS [None]
